FAERS Safety Report 23427600 (Version 1)
Quarter: 2024Q1

REPORT INFORMATION
  Report Type: Spontaneous
  Country: JP (occurrence: JP)
  Receive Date: 20240122
  Receipt Date: 20240122
  Transmission Date: 20240410
  Serious: Yes (Life-Threatening, Hospitalization, Other)
  Sender: FDA-Public Use
  Company Number: JP-PFIZER INC-PV202400006412

PATIENT
  Age: 70 Year
  Sex: Male

DRUGS (9)
  1. METHYLPREDNISOLONE SODIUM SUCCINATE [Suspect]
     Active Substance: METHYLPREDNISOLONE SODIUM SUCCINATE
     Indication: Mitral valve incompetence
     Dosage: SINGLE-DOSE
  2. METHYLPREDNISOLONE SODIUM SUCCINATE [Suspect]
     Active Substance: METHYLPREDNISOLONE SODIUM SUCCINATE
     Indication: Systolic anterior motion of mitral valve
  3. LANDIOLOL [Suspect]
     Active Substance: LANDIOLOL
     Indication: Systolic anterior motion of mitral valve
     Dosage: UNK
  4. LANDIOLOL [Suspect]
     Active Substance: LANDIOLOL
     Indication: Mitral valve incompetence
  5. DILTIAZEM [Suspect]
     Active Substance: DILTIAZEM
     Indication: Systolic anterior motion of mitral valve
     Dosage: 100 MG, DAILY
  6. DILTIAZEM [Suspect]
     Active Substance: DILTIAZEM
     Indication: Mitral valve incompetence
  7. DILTIAZEM [Suspect]
     Active Substance: DILTIAZEM
     Indication: Hypertrophic cardiomyopathy
  8. BISOPROLOL [Concomitant]
     Active Substance: BISOPROLOL\BISOPROLOL FUMARATE
     Indication: Hypertrophic cardiomyopathy
     Dosage: 5 MG, DAILY
  9. CIFENLINE [Concomitant]
     Active Substance: CIFENLINE
     Indication: Hypertrophic cardiomyopathy
     Dosage: 100 MG, DAILY

REACTIONS (2)
  - Drug ineffective for unapproved indication [Unknown]
  - Off label use [Unknown]
